FAERS Safety Report 20889367 (Version 1)
Quarter: 2022Q2

REPORT INFORMATION
  Report Type: Spontaneous
  Country: US (occurrence: US)
  Receive Date: 20220530
  Receipt Date: 20220530
  Transmission Date: 20220721
  Serious: No
  Sender: FDA-Public Use
  Company Number: US-TARO PHARMACEUTICALS USA INC.-2021TAR00856

PATIENT

DRUGS (1)
  1. TERCONAZOLE [Suspect]
     Active Substance: TERCONAZOLE
     Indication: Vaginal infection
     Dosage: INSERT 1 APPLICATOR FULL IN 3-7 DAYS
     Route: 067

REACTIONS (3)
  - Disease recurrence [Unknown]
  - Incorrect dose administered by product [Unknown]
  - Product packaging issue [Unknown]
